FAERS Safety Report 19632881 (Version 1)
Quarter: 2021Q3

REPORT INFORMATION
  Report Type: Spontaneous
  Country: CA (occurrence: CA)
  Receive Date: 20210730
  Receipt Date: 20210730
  Transmission Date: 20211014
  Serious: Yes (Hospitalization)
  Sender: FDA-Public Use
  Company Number: CA-AUROBINDO-AUR-APL-2021-031489

PATIENT
  Age: 8 Day
  Sex: Female
  Weight: 2 kg

DRUGS (4)
  1. LAMIVUDINE. [Concomitant]
     Active Substance: LAMIVUDINE
     Indication: PRODUCT USED FOR UNKNOWN INDICATION
     Dosage: UNK
     Route: 065
  2. MORPHINE [Concomitant]
     Active Substance: MORPHINE
     Indication: PRODUCT USED FOR UNKNOWN INDICATION
     Dosage: UNK
     Route: 065
  3. NEVIRAPINE. [Suspect]
     Active Substance: NEVIRAPINE
     Indication: PROPHYLAXIS AGAINST HIV INFECTION
     Dosage: 28.5 MILLIGRAM, ONCE A DAY
     Route: 048
  4. ZIDOVUDINE. [Concomitant]
     Active Substance: ZIDOVUDINE
     Indication: PRODUCT USED FOR UNKNOWN INDICATION
     Dosage: UNK
     Route: 065

REACTIONS (6)
  - Livedo reticularis [Recovered/Resolved]
  - Pyrexia [Recovered/Resolved]
  - C-reactive protein increased [Recovered/Resolved]
  - Pallor [Recovered/Resolved]
  - Feeding intolerance [Recovered/Resolved]
  - Rash maculo-papular [Recovered/Resolved]
